FAERS Safety Report 24120382 (Version 2)
Quarter: 2024Q3

REPORT INFORMATION
  Report Type: Spontaneous
  Country: TR (occurrence: TR)
  Receive Date: 20240722
  Receipt Date: 20240902
  Transmission Date: 20241016
  Serious: Yes (Hospitalization)
  Sender: TEVA
  Company Number: TR-TEVA-VS-3220090

PATIENT
  Age: 78 Year
  Sex: Male

DRUGS (10)
  1. CARBOPLATIN [Suspect]
     Active Substance: CARBOPLATIN
     Indication: Lung neoplasm malignant
     Dosage: SIX CYCLES
     Route: 065
  2. DOCETAXEL [Suspect]
     Active Substance: DOCETAXEL\DOCETAXEL ANHYDROUS
     Indication: Lung neoplasm malignant
     Dosage: FOUR CYCLES
     Route: 065
  3. VFEND [Concomitant]
     Active Substance: VORICONAZOLE
     Indication: Aspergillus infection
     Route: 051
  4. VFEND [Concomitant]
     Active Substance: VORICONAZOLE
     Indication: Aspergillus infection
     Dosage: THREE INTRAVITREAL INJECTIONS OF 0.1 MG/0.1 CC
     Route: 050
  5. VFEND [Concomitant]
     Active Substance: VORICONAZOLE
     Indication: Aspergillus infection
     Route: 048
  6. AMBISOME [Concomitant]
     Active Substance: AMPHOTERICIN B
     Indication: Aspergillus infection
     Route: 051
  7. AMBISOME [Concomitant]
     Active Substance: AMPHOTERICIN B
     Indication: Aspergillus infection
     Dosage: SEVEN INTRAVITREAL INJECTIONS OF  5 MCG/0.1  CC
     Route: 050
  8. Mikafungus [Concomitant]
     Indication: Aspergillus infection
     Route: 051
  9. PACLITAXEL [Suspect]
     Active Substance: PACLITAXEL
     Indication: Lung neoplasm malignant
     Dosage: RECEIVED ONE MORE CYCLE
     Route: 065
  10. PACLITAXEL [Suspect]
     Active Substance: PACLITAXEL
     Indication: Lung neoplasm malignant
     Dosage: SIX CYCLES
     Route: 065

REACTIONS (2)
  - Endophthalmitis [Unknown]
  - Drug ineffective [Unknown]
